FAERS Safety Report 7105816-9 (Version None)
Quarter: 2010Q4

REPORT INFORMATION
  Report Type: 
  Country: None (occurrence: None)
  Receive Date: 20101110
  Receipt Date: 20101026
  Transmission Date: 20110411
  Serious: Yes (Death)
  Sender: FDA-Public Use
  Company Number: UTC-001805

PATIENT
  Age: 54 Year
  Sex: Female
  Weight: 72.72 kg

DRUGS (16)
  1. TYVASO [Suspect]
     Dosage: (36 MCG, 1 D), INHALATION
     Route: 055
     Dates: start: 20100326
  2. THIAMINE (THIAMINE) [Concomitant]
  3. LASIX [Concomitant]
  4. KLONOPIN [Concomitant]
  5. TRAZODONE HCL [Concomitant]
  6. PROTONIX [Concomitant]
  7. MULTIVITAMIN [Concomitant]
  8. NICOTINE [Concomitant]
  9. NEURONTIN [Concomitant]
  10. TRAMADOL HCL [Concomitant]
  11. VITAMIN B COMPLEX (B-KOMPLEX) [Concomitant]
  12. SEROQUEL [Concomitant]
  13. MAG-OX (MAGNESIUM OXIDE) [Concomitant]
  14. FOLIC ACID [Concomitant]
  15. VITAMIN D [Concomitant]
  16. POTASSIUM CHLORIDE [Concomitant]

REACTIONS (1)
  - DEATH [None]
